FAERS Safety Report 4940049-3 (Version None)
Quarter: 2006Q1

REPORT INFORMATION
  Report Type: 
  Country: None (occurrence: None)
  Receive Date: 20060310
  Receipt Date: 20060214
  Transmission Date: 20060701
  Serious: Yes (Hospitalization)
  Sender: FDA-Public Use
  Company Number: 2006AP00814

PATIENT
  Age: 20160 Day
  Sex: Male
  Weight: 53 kg

DRUGS (7)
  1. IRESSA [Suspect]
     Indication: LUNG NEOPLASM MALIGNANT
     Route: 048
     Dates: start: 20051121
  2. CISPLATIN [Concomitant]
     Dates: start: 20040501, end: 20040529
  3. CISPLATIN [Concomitant]
     Dates: start: 20040628
  4. TAXOTERE [Concomitant]
     Dates: start: 20040501, end: 20040529
  5. TAXOTERE [Concomitant]
     Dates: start: 20040628
  6. CARBOPLATIN [Concomitant]
     Dosage: AUC= 5.0
     Dates: start: 20051013
  7. PACLITAXEL [Concomitant]
     Dates: start: 20051013

REACTIONS (5)
  - LUNG INFECTION [None]
  - RASH [None]
  - REFUSAL OF TREATMENT BY PATIENT [None]
  - SKIN ULCER [None]
  - STOMATITIS [None]
